FAERS Safety Report 19812520 (Version 1)
Quarter: 2021Q3

REPORT INFORMATION
  Report Type: Spontaneous
  Country: US (occurrence: US)
  Receive Date: 20210910
  Receipt Date: 20210910
  Transmission Date: 20211014
  Serious: Yes (Hospitalization)
  Sender: FDA-Public Use
  Company Number: US-STRIDES ARCOLAB LIMITED-2021SP025098

PATIENT
  Age: 77 Year
  Sex: Male

DRUGS (9)
  1. PREDNISONE. [Suspect]
     Active Substance: PREDNISONE
     Indication: PACHYMENINGITIS
     Dosage: 40 MILLIGRAM STARTED IN THE SPRING OF 2020 ALONG WITH LEVETIRACETAM
     Route: 048
     Dates: start: 2020, end: 2020
  2. RITUXIMAB. [Suspect]
     Active Substance: RITUXIMAB
     Indication: GRANULOMATOSIS WITH POLYANGIITIS
     Dosage: BETWEEN 2006 AND 2015, THE PATIENT RECEIVED TOTAL 6 TREATMENTS WITH RITUXIMAB
     Route: 065
  3. RITUXIMAB. [Suspect]
     Active Substance: RITUXIMAB
     Indication: UVEITIS
     Dosage: 1000 MILLIGRAM, INFUSIONS, TWO DOSES 2 WEEKS APART
     Route: 042
     Dates: start: 202007
  4. RITUXIMAB. [Suspect]
     Active Substance: RITUXIMAB
     Dosage: RECEIVED TWO DOSES, ONE AT THE END OF AUGUST AND ANOTHER IN EARLY SEPTEMBER
     Route: 042
     Dates: start: 202008, end: 202009
  5. PREDNISONE. [Suspect]
     Active Substance: PREDNISONE
     Dosage: TAPERING STARTED AFTER RECEIVING TWO DOSES OF IV RITUXIMAB
     Route: 048
     Dates: start: 202009
  6. PREDNISONE. [Suspect]
     Active Substance: PREDNISONE
     Indication: GRANULOMATOSIS WITH POLYANGIITIS
     Dosage: ALONG WITH METHOTREXATE
     Route: 065
  7. PREDNISONE. [Suspect]
     Active Substance: PREDNISONE
     Dosage: 15 MILLIGRAM
     Route: 048
  8. LEVETIRACETAM. [Suspect]
     Active Substance: LEVETIRACETAM
     Indication: PACHYMENINGITIS
     Dosage: STARTED IN THE SPRING OF 2020 ALONG WITH PREDNISONE
     Route: 065
     Dates: start: 2020
  9. ATOVAQUONE. [Concomitant]
     Active Substance: ATOVAQUONE
     Indication: PRODUCT USED FOR UNKNOWN INDICATION
     Dosage: UNK
     Route: 065

REACTIONS (3)
  - Sepsis [Recovered/Resolved]
  - Off label use [Unknown]
  - COVID-19 pneumonia [Recovered/Resolved]

NARRATIVE: CASE EVENT DATE: 2020
